FAERS Safety Report 25242539 (Version 1)
Quarter: 2025Q2

REPORT INFORMATION
  Report Type: Spontaneous
  Country: US (occurrence: US)
  Receive Date: 20250427
  Receipt Date: 20250427
  Transmission Date: 20250717
  Serious: Yes (Other)
  Sender: MERCK SHARP & DOHME LLC
  Company Number: US-009507513-2279111

PATIENT
  Sex: Male

DRUGS (2)
  1. KEYTRUDA [Suspect]
     Active Substance: PEMBROLIZUMAB
     Indication: Metastatic carcinoma of the bladder
     Route: 065
     Dates: start: 202404
  2. PADCEV [Suspect]
     Active Substance: ENFORTUMAB VEDOTIN-EJFV
     Indication: Metastatic carcinoma of the bladder
     Route: 065
     Dates: start: 202404

REACTIONS (2)
  - Nephritis [Unknown]
  - Urinary tract obstruction [Unknown]
